FAERS Safety Report 24049702 (Version 1)
Quarter: 2024Q3

REPORT INFORMATION
  Report Type: Spontaneous
  Country: US (occurrence: US)
  Receive Date: 20240704
  Receipt Date: 20240704
  Transmission Date: 20241017
  Serious: Yes (Hospitalization, Other)
  Sender: RANBAXY
  Company Number: US-SUNPHARMA-2024R1-454417AA

PATIENT
  Age: 41 Year
  Sex: Female

DRUGS (1)
  1. METOPROLOL [Suspect]
     Active Substance: METOPROLOL
     Indication: Pulmonary hypertension
     Dosage: 100 MILLIGRAM
     Route: 048

REACTIONS (1)
  - Cardiogenic shock [Recovering/Resolving]
